FAERS Safety Report 12854095 (Version 1)
Quarter: 2016Q4

REPORT INFORMATION
  Report Type: Spontaneous
  Country: US (occurrence: US)
  Receive Date: 20161017
  Receipt Date: 20161017
  Transmission Date: 20170207
  Serious: No
  Sender: FDA-Public Use
  Company Number: None

PATIENT

DRUGS (1)
  1. FLUCONAZOLE FOR ORAL SUSPENSION WEST WARD PHARMACEUTICALS [Suspect]
     Active Substance: FLUCONAZOLE
     Dosage: ?          QUANTITY:50000 BOTTLES;?
     Route: 048

REACTIONS (3)
  - Incorrect dose administered by device [None]
  - Device malfunction [None]
  - Product quality issue [None]

NARRATIVE: CASE EVENT DATE: 20161011
